FAERS Safety Report 24971199 (Version 3)
Quarter: 2025Q1

REPORT INFORMATION
  Report Type: Report from Study
  Country: ES (occurrence: ES)
  Receive Date: 20250214
  Receipt Date: 20250227
  Transmission Date: 20250409
  Serious: Yes (Other)
  Sender: JOHNSON AND JOHNSON
  Company Number: ES-JNJFOC-20250195676

PATIENT
  Age: 73 Year
  Sex: Female

DRUGS (10)
  1. TALQUETAMAB [Suspect]
     Active Substance: TALQUETAMAB
     Indication: Plasma cell myeloma
     Dates: start: 20230515, end: 20240929
  2. RETACRIT [Concomitant]
     Active Substance: EPOETIN ALFA-EPBX
  3. ACYCLOVIR [Concomitant]
     Active Substance: ACYCLOVIR
  4. SULFAMETHOXAZOLE\TRIMETHOPRIM [Concomitant]
     Active Substance: SULFAMETHOXAZOLE\TRIMETHOPRIM
  5. FOLIC ACID [Concomitant]
     Active Substance: FOLIC ACID
  6. PANTOPRAZOLE [Concomitant]
     Active Substance: PANTOPRAZOLE
  7. METFORMIN HYDROCHLORIDE\VILDAGLIPTIN [Concomitant]
     Active Substance: METFORMIN HYDROCHLORIDE\VILDAGLIPTIN
  8. INSULIN GLARGINE [Concomitant]
     Active Substance: INSULIN GLARGINE
  9. INSULIN NOS [Concomitant]
     Active Substance: INSULIN NOS
  10. ASPIRIN [Concomitant]
     Active Substance: ASPIRIN

REACTIONS (2)
  - Pancytopenia [Recovered/Resolved with Sequelae]
  - Upper respiratory tract infection [Unknown]

NARRATIVE: CASE EVENT DATE: 20240307
